FAERS Safety Report 23069309 (Version 2)
Quarter: 2023Q4

REPORT INFORMATION
  Report Type: Spontaneous
  Country: US (occurrence: US)
  Receive Date: 20231016
  Receipt Date: 20231017
  Transmission Date: 20240110
  Serious: Yes (Other)
  Sender: FDA-Public Use
  Company Number: US-PFIZER INC-PV202300152122

PATIENT
  Age: 88 Year
  Sex: Male

DRUGS (1)
  1. VYNDAMAX [Suspect]
     Active Substance: TAFAMIDIS
     Indication: Acquired ATTR amyloidosis
     Dosage: 61 MG, 2X/WEEK, (TAKE 1 CAPSULE (61 MG) BY ORAL ROUTE TWICE A WEEK)
     Route: 048

REACTIONS (3)
  - Dyspnoea at rest [Unknown]
  - Dyspnoea [Unknown]
  - Off label use [Unknown]
